FAERS Safety Report 7137945-8 (Version None)
Quarter: 2010Q4

REPORT INFORMATION
  Report Type: 
  Country: None (occurrence: None)
  Receive Date: 20101103
  Receipt Date: 20100825
  Transmission Date: 20110411
  Serious: Yes (Other)
  Sender: FDA-Public Use
  Company Number: 2010S1001294

PATIENT
  Age: 59 Year
  Sex: Male

DRUGS (4)
  1. CUBICIN [Suspect]
     Indication: STAPHYLOCOCCAL BACTERAEMIA
     Dosage: 12 MG/KG; Q24H;
  2. LINEZOLID [Concomitant]
  3. CEFPIROME [Concomitant]
  4. TEICOPLANIN [Concomitant]

REACTIONS (2)
  - PYREXIA [None]
  - STAPHYLOCOCCAL BACTERAEMIA [None]
